FAERS Safety Report 9297886 (Version 1)
Quarter: 2013Q2

REPORT INFORMATION
  Report Type: Spontaneous
  Country: AT (occurrence: AT)
  Receive Date: 20130520
  Receipt Date: 20130520
  Transmission Date: 20140414
  Serious: Yes (Hospitalization, Disabling)
  Sender: FDA-Public Use
  Company Number: AT-JNJFOC-20130411239

PATIENT
  Age: 76 Year
  Sex: Female

DRUGS (8)
  1. XARELTO [Suspect]
     Indication: ATRIAL FIBRILLATION
     Route: 048
     Dates: start: 201208, end: 20130416
  2. XARELTO [Suspect]
     Indication: CEREBROVASCULAR ACCIDENT PROPHYLAXIS
     Route: 048
     Dates: start: 201208, end: 20130416
  3. ILOPROST [Concomitant]
     Indication: PRODUCT USED FOR UNKNOWN INDICATION
     Route: 065
     Dates: start: 201301
  4. MICARDIS PLUS [Concomitant]
     Indication: HYPERTONIA
     Route: 065
  5. CONCOR COR [Concomitant]
     Indication: ATRIAL FIBRILLATION
     Route: 065
  6. CONCOR COR [Concomitant]
     Indication: HYPERTONIA
     Route: 065
  7. ARICEPT [Concomitant]
     Indication: DEMENTIA ALZHEIMER^S TYPE
     Route: 065
  8. ENOXAPARIN [Concomitant]

REACTIONS (3)
  - Photopsia [Unknown]
  - Retinal haemorrhage [Not Recovered/Not Resolved]
  - Visual impairment [Unknown]
